FAERS Safety Report 22630366 (Version 1)
Quarter: 2023Q2

REPORT INFORMATION
  Report Type: Spontaneous
  Country: MY (occurrence: MY)
  Receive Date: 20230622
  Receipt Date: 20230622
  Transmission Date: 20230722
  Serious: Yes (Other)
  Sender: FDA-Public Use
  Company Number: MY-BAYER-2023A084689

PATIENT
  Age: 68 Year
  Sex: Male

DRUGS (1)
  1. PRIMOVIST [Suspect]
     Active Substance: GADOXETATE DISODIUM
     Indication: Magnetic resonance imaging heart
     Dosage: 1 DF, ONCE
     Route: 042

REACTIONS (1)
  - Nephropathy [Recovered/Resolved]
